FAERS Safety Report 10761363 (Version 1)
Quarter: 2015Q1

REPORT INFORMATION
  Report Type: Spontaneous
  Country: None (occurrence: None)
  Receive Date: 20150203
  Receipt Date: 20150203
  Transmission Date: 20150721
  Serious: Yes (Other)
  Sender: FDA-Public Use
  Company Number: None

PATIENT
  Age: 37 Year
  Sex: Male
  Weight: 84.82 kg

DRUGS (2)
  1. NASACORT [Suspect]
     Active Substance: TRIAMCINOLONE ACETONIDE
     Indication: SINUS CONGESTION
     Dosage: 2 PUFFS EACH NOSTRIL, ONCE DAILY, INHALATION
     Route: 055
     Dates: start: 20140501, end: 20140528
  2. NASACORT [Suspect]
     Active Substance: TRIAMCINOLONE ACETONIDE
     Indication: SEASONAL ALLERGY
     Dosage: 2 PUFFS EACH NOSTRIL, ONCE DAILY, INHALATION
     Route: 055
     Dates: start: 20140501, end: 20140528

REACTIONS (3)
  - Carbuncle [None]
  - Dermal cyst [None]
  - Lymphadenopathy [None]

NARRATIVE: CASE EVENT DATE: 20140521
